FAERS Safety Report 20774250 (Version 3)
Quarter: 2022Q4

REPORT INFORMATION
  Report Type: Spontaneous
  Country: US (occurrence: US)
  Receive Date: 20220502
  Receipt Date: 20221230
  Transmission Date: 20230113
  Serious: No
  Sender: FDA-Public Use
  Company Number: US-PFIZER INC-202200533699

PATIENT
  Age: 76 Year
  Sex: Female
  Weight: 84.807 kg

DRUGS (2)
  1. IBRANCE [Suspect]
     Active Substance: PALBOCICLIB
     Dosage: 125 MG, UNK
  2. IBRANCE [Suspect]
     Active Substance: PALBOCICLIB
     Dosage: 100 MG

REACTIONS (5)
  - Wrong dosage formulation [Unknown]
  - Reaction to excipient [Unknown]
  - Abdominal discomfort [Unknown]
  - Vomiting [Unknown]
  - Drug intolerance [Unknown]
